FAERS Safety Report 10240650 (Version 1)
Quarter: 2014Q1

REPORT INFORMATION
  Report Type: Spontaneous
  Country: US (occurrence: None)
  Receive Date: 20140306
  Receipt Date: 20140306
  Transmission Date: 20141002
  Serious: Yes (Other)
  Sender: FDA-Public Use
  Company Number: 163-21880-13092794

PATIENT
  Age: 70 Year
  Sex: Female
  Weight: 125.65 kg

DRUGS (16)
  1. REVLIMID (LENALIDOMIDE) (CAPSULES) [Suspect]
     Indication: PLASMA CELL MYELOMA
     Route: 048
     Dates: start: 20111219, end: 201201
  2. COUMADIN (WARFARIN SODIUM) (UNKNOWN) [Concomitant]
  3. ADVAIR (SERETIDE MITE) (UNKNOWN) [Concomitant]
  4. ATORVASTATIN CALCIUM (ATORVASTATIN CALCIUM) (UNKNOWN) [Concomitant]
  5. FERROUS SULFATE (FERROUS SULFATE) (UNKNOWN) [Concomitant]
  6. HYDRALAZINE (HYDRALAZINE) (UNKNOWN) [Concomitant]
  7. IPRATROPIUM BROMIDE NEBULIZER (IPRATROPIUM BROMIDE) (UNKNOWN) [Concomitant]
  8. LEVEMIR (INSULIN DETEMIR) (UNKNOWN) [Concomitant]
  9. LUMIGAN (BIMATOPROST) (DROPS) [Concomitant]
  10. METOPROLOL (METOPROLOL) (UNKNOWN) [Concomitant]
  11. NOVOLOG (INSULIN ASPSART) (UNKNOWN) [Concomitant]
  12. OMEPRAZOLE (OMEPRAZOLE) (UNKNOWN) [Concomitant]
  13. SEVELAMER HCL (SEVELAMER) (UNKNOWN) [Concomitant]
  14. SYNTHROID (LEVOTHYROXINE SODIUM) (UNKNOWN) [Concomitant]
  15. TORSEMIDE (TORASEMIDE) (UNKNOWN) [Concomitant]
  16. VENLAFAXINE (VENLAFAXINE) (UNKNOWN) [Concomitant]

REACTIONS (1)
  - Pulmonary embolism [None]
